FAERS Safety Report 15241211 (Version 1)
Quarter: 2018Q3

REPORT INFORMATION
  Report Type: Spontaneous
  Country: US (occurrence: US)
  Receive Date: 20180711
  Receipt Date: 20180711
  Transmission Date: 20181010
  Serious: Yes (Hospitalization, Disabling)
  Sender: FDA-Public Use
  Company Number: None

PATIENT
  Age: 56 Year
  Sex: Female
  Weight: 66.6 kg

DRUGS (8)
  1. IBUPROFEN. [Concomitant]
     Active Substance: IBUPROFEN
  2. DECADRON [Suspect]
     Active Substance: DEXAMETHASONE
     Indication: SPONDYLOARTHROPATHY
     Route: 042
     Dates: start: 20180628, end: 20180701
  3. CLONAZEPAM. [Concomitant]
     Active Substance: CLONAZEPAM
  4. TYLENOL [Concomitant]
     Active Substance: ACETAMINOPHEN
  5. DECADRON [Suspect]
     Active Substance: DEXAMETHASONE
     Indication: SPINAL PAIN
     Route: 042
     Dates: start: 20180628, end: 20180701
  6. METROPOLOL [Concomitant]
     Active Substance: METOPROLOL
  7. ROBAXIN [Concomitant]
     Active Substance: METHOCARBAMOL
  8. GABAPENTIN. [Concomitant]
     Active Substance: GABAPENTIN

REACTIONS (4)
  - Impaired work ability [None]
  - Tachycardia [None]
  - Hypertension [None]
  - Dyspnoea [None]

NARRATIVE: CASE EVENT DATE: 20180702
